FAERS Safety Report 7030635-1 (Version None)
Quarter: 2010Q4

REPORT INFORMATION
  Report Type: 
  Country: None (occurrence: None)
  Receive Date: 20101006
  Receipt Date: 20100927
  Transmission Date: 20110411
  Serious: Yes (Hospitalization)
  Sender: FDA-Public Use
  Company Number: BR-ROCHE-730015

PATIENT
  Sex: Female
  Weight: 74 kg

DRUGS (7)
  1. TOCILIZUMAB [Suspect]
     Indication: RHEUMATOID ARTHRITIS
     Route: 042
     Dates: start: 20100518, end: 20100920
  2. TILATIL [Concomitant]
  3. DEFLAZACORT [Concomitant]
  4. ARAVA [Concomitant]
  5. TYLEX [Concomitant]
  6. LEXAPRO [Concomitant]
  7. NAPROXENO [Concomitant]

REACTIONS (5)
  - HYPERSENSITIVITY [None]
  - RED BLOOD CELL SEDIMENTATION RATE ABNORMAL [None]
  - RHEUMATOID ARTHRITIS [None]
  - URINARY TRACT INFECTION [None]
  - URINE ANALYSIS ABNORMAL [None]
